FAERS Safety Report 18272800 (Version 1)
Quarter: 2020Q3

REPORT INFORMATION
  Report Type: Spontaneous
  Country: FR (occurrence: FR)
  Receive Date: 20200916
  Receipt Date: 20200916
  Transmission Date: 20201103
  Serious: Yes (Hospitalization)
  Sender: FDA-Public Use
  Company Number: FR-MYLANLABS-2020M1078147

PATIENT
  Age: 69 Year
  Sex: Female
  Weight: 115 kg

DRUGS (5)
  1. SELOKEN L [Concomitant]
     Active Substance: METOPROLOL TARTRATE
     Dosage: 1 DOSAGE FORM, QD
     Route: 048
  2. XARELTO [Suspect]
     Active Substance: RIVAROXABAN
     Indication: THROMBOSIS PROPHYLAXIS
     Dosage: 1 DOSAGE FORM, QD
     Route: 048
  3. VALSARTAN. [Concomitant]
     Active Substance: VALSARTAN
     Dosage: 160 MILLIGRAM, QD
     Route: 048
  4. PAROXETINE. [Suspect]
     Active Substance: PAROXETINE
     Indication: DEPRESSION
     Dosage: 20 MILLIGRAM, QD
     Route: 048
  5. PRAVASTATIN SODIUM. [Concomitant]
     Active Substance: PRAVASTATIN SODIUM
     Dosage: 40 MILLIGRAM, QD
     Route: 048

REACTIONS (1)
  - Epistaxis [Recovered/Resolved]

NARRATIVE: CASE EVENT DATE: 20200520
